FAERS Safety Report 6749277-8 (Version None)
Quarter: 2010Q2

REPORT INFORMATION
  Report Type: 
  Country: None (occurrence: None)
  Receive Date: 20100601
  Receipt Date: 20100520
  Transmission Date: 20101027
  Serious: Yes (Other)
  Sender: FDA-Public Use
  Company Number: PHHY2010CA33200

PATIENT
  Sex: Female
  Weight: 64.4 kg

DRUGS (2)
  1. ACLASTA/ZOLEDRONATE T29581+A+ [Suspect]
     Dosage: UNK,
  2. ACTONEL [Concomitant]
     Dosage: 75 MG
     Dates: start: 20090304, end: 20100101

REACTIONS (2)
  - FOOT FRACTURE [None]
  - TRAUMATIC FRACTURE [None]
